FAERS Safety Report 10154891 (Version 3)
Quarter: 2014Q3

REPORT INFORMATION
  Report Type: Spontaneous
  Country: US (occurrence: US)
  Receive Date: 20140506
  Receipt Date: 20140728
  Transmission Date: 20150326
  Serious: Yes (Hospitalization, Other)
  Sender: FDA-Public Use
  Company Number: US-GILEAD-2014-0101540

PATIENT
  Sex: Female

DRUGS (3)
  1. LETAIRIS [Suspect]
     Active Substance: AMBRISENTAN
     Indication: PRODUCT USED FOR UNKNOWN INDICATION
     Dosage: 5 MG, QD
     Route: 065
     Dates: start: 20100129
  2. WARFARIN [Concomitant]
     Active Substance: WARFARIN
  3. OXYGEN. [Concomitant]
     Active Substance: OXYGEN

REACTIONS (2)
  - Atrial fibrillation [Unknown]
  - Pneumonia [Unknown]
